FAERS Safety Report 25362982 (Version 1)
Quarter: 2025Q2

REPORT INFORMATION
  Report Type: Spontaneous
  Country: CN (occurrence: CN)
  Receive Date: 20250527
  Receipt Date: 20250527
  Transmission Date: 20250717
  Serious: Yes (Hospitalization)
  Sender: NOVARTIS
  Company Number: CN-002147023-NVSC2025CN081751

PATIENT
  Age: 73 Year
  Sex: Male

DRUGS (1)
  1. FABHALTA [Suspect]
     Active Substance: IPTACOPAN HYDROCHLORIDE
     Indication: Paroxysmal nocturnal haemoglobinuria
     Route: 048

REACTIONS (4)
  - Meningorrhagia [Unknown]
  - Emphysema [Unknown]
  - Subdural haematoma [Unknown]
  - Altered state of consciousness [Unknown]
